FAERS Safety Report 6053364-X (Version None)
Quarter: 2009Q1

REPORT INFORMATION
  Report Type: 
  Country: None (occurrence: None)
  Receive Date: 20090123
  Receipt Date: 20090109
  Transmission Date: 20090719
  Serious: Yes (Other)
  Sender: FDA-Public Use
  Company Number: URSO-2008-143 FUP#1

PATIENT
  Age: 55 Year
  Sex: Male

DRUGS (9)
  1. URSODIOL [Suspect]
     Indication: DILATATION INTRAHEPATIC DUCT CONGENITAL
     Dosage: 500 MG/DAY
     Route: 048
     Dates: start: 20081015
  2. PREVISCAN (FLUINDIONE) [Concomitant]
  3. COUMADIN [Concomitant]
  4. FOSITEC (FOSINOPRIL) [Concomitant]
  5. BISOPROLOL FUMARATE [Concomitant]
  6. PREXIUM (PERINDOPRIL) [Concomitant]
  7. DIAMICRON (GLICLAZIDE) [Concomitant]
  8. IMOVANE (ZOPICLONE) [Concomitant]
  9. THERALENE (TRIMEPRAZINE) [Concomitant]

REACTIONS (2)
  - DRUG INTERACTION [None]
  - INTERNATIONAL NORMALISED RATIO DECREASED [None]
